FAERS Safety Report 5153735-X (Version None)
Quarter: 2006Q4

REPORT INFORMATION
  Report Type: 
  Country: None (occurrence: None)
  Receive Date: 20061120
  Receipt Date: 20060802
  Transmission Date: 20070319
  Serious: Yes (Hospitalization, Other)
  Sender: FDA-Public Use
  Company Number: US-ELI_LILLY_AND_COMPANY-US200608000465

PATIENT
  Age: 47 Year
  Sex: Female
  Weight: 70.294 kg

DRUGS (3)
  1. ZYPREXA [Suspect]
     Dosage: 5 MG, UNK
  2. ZYPREXA [Suspect]
     Dosage: 2.5 MG, UNK
     Dates: start: 20040409, end: 20050401
  3. VENLAFAXIINE HCL [Concomitant]
     Dates: start: 20031101, end: 20050201

REACTIONS (5)
  - DIABETES MELLITUS [None]
  - DIABETIC COMA [None]
  - DIABETIC KETOACIDOSIS [None]
  - HEPATITIS VIRAL [None]
  - PANCREATITIS [None]
